FAERS Safety Report 12290105 (Version 3)
Quarter: 2016Q3

REPORT INFORMATION
  Report Type: Spontaneous
  Country: PL (occurrence: PL)
  Receive Date: 20160421
  Receipt Date: 20160705
  Transmission Date: 20161109
  Serious: Yes (Other)
  Sender: FDA-Public Use
  Company Number: PL-GLAXOSMITHKLINE-PL2016GSK050473

PATIENT
  Age: 32 Year
  Sex: Female

DRUGS (3)
  1. ZINAT [Suspect]
     Active Substance: CEFUROXIME AXETIL
     Indication: LARYNGITIS
     Dosage: 500 MG, BID
     Route: 048
     Dates: start: 20160411
  2. ZINAT [Suspect]
     Active Substance: CEFUROXIME AXETIL
     Indication: SINUSITIS
  3. AUGMENTIN [Concomitant]
     Active Substance: AMOXICILLIN\CLAVULANATE POTASSIUM
     Indication: PRODUCT USED FOR UNKNOWN INDICATION
     Dosage: UNK
     Dates: start: 2011, end: 2011

REACTIONS (14)
  - Abdominal pain lower [Recovered/Resolved]
  - Vaginal haemorrhage [Recovered/Resolved]
  - Nausea [Recovered/Resolved]
  - Product quality issue [Unknown]
  - Urticaria [Recovered/Resolved]
  - Pruritus [Recovered/Resolved]
  - Cold sweat [Recovered/Resolved]
  - Cyanosis [Recovered/Resolved]
  - Diarrhoea [Recovered/Resolved]
  - Nail discolouration [Recovered/Resolved]
  - Hyperhidrosis [Unknown]
  - Loss of consciousness [Recovered/Resolved]
  - Flushing [Recovered/Resolved]
  - Vomiting [Recovered/Resolved]

NARRATIVE: CASE EVENT DATE: 20160411
